FAERS Safety Report 25851539 (Version 1)
Quarter: 2025Q3

REPORT INFORMATION
  Report Type: Spontaneous
  Country: US (occurrence: US)
  Receive Date: 20250926
  Receipt Date: 20250926
  Transmission Date: 20251020
  Serious: Yes (Other)
  Sender: MYLAN
  Company Number: US-MYLANLABS-2025M1080744

PATIENT
  Age: 80 Year
  Sex: Male

DRUGS (6)
  1. KETOROLAC [Suspect]
     Active Substance: KETOROLAC TROMETHAMINE
     Indication: Cystoid macular oedema
  2. KETOROLAC [Suspect]
     Active Substance: KETOROLAC TROMETHAMINE
     Indication: Macular oedema
  3. PREDNISOLONE [Suspect]
     Active Substance: PREDNISOLONE
     Indication: Cystoid macular oedema
  4. PREDNISOLONE [Suspect]
     Active Substance: PREDNISOLONE
     Indication: Macular oedema
  5. PREDNISOLONE [Suspect]
     Active Substance: PREDNISOLONE
     Indication: Photophobia
  6. DIFLUPREDNATE [Suspect]
     Active Substance: DIFLUPREDNATE
     Indication: Cystoid macular oedema
     Dosage: UNK, QID, IN LEFT EYE

REACTIONS (3)
  - Drug ineffective [Unknown]
  - Ocular hypertension [Recovering/Resolving]
  - Off label use [Unknown]
